FAERS Safety Report 5500319-7 (Version None)
Quarter: 2007Q4

REPORT INFORMATION
  Report Type: 
  Country: None (occurrence: None)
  Receive Date: 20071025
  Receipt Date: 20071011
  Transmission Date: 20080405
  Serious: Yes (Other)
  Sender: FDA-Public Use
  Company Number: ENT 2007-0180

PATIENT
  Age: 75 Year
  Sex: Female

DRUGS (4)
  1. COMTAN [Suspect]
     Indication: PARKINSON'S DISEASE
     Dosage: 300 MG ORAL, 500 MG, 400 MG
     Route: 048
     Dates: start: 20070709, end: 20070729
  2. COMTAN [Suspect]
     Indication: PARKINSON'S DISEASE
     Dosage: 300 MG ORAL, 500 MG, 400 MG
     Route: 048
     Dates: start: 20070730, end: 20070909
  3. COMTAN [Suspect]
     Indication: PARKINSON'S DISEASE
     Dosage: 300 MG ORAL, 500 MG, 400 MG
     Route: 048
     Dates: start: 20070910, end: 20071002
  4. NEO DOPASTON [Concomitant]

REACTIONS (2)
  - HALLUCINATION [None]
  - TREATMENT NONCOMPLIANCE [None]
